FAERS Safety Report 15367058 (Version 2)
Quarter: 2018Q4

REPORT INFORMATION
  Report Type: Report from Study
  Country: US (occurrence: US)
  Receive Date: 20180910
  Receipt Date: 20181002
  Transmission Date: 20190204
  Serious: No
  Sender: FDA-Public Use
  Company Number: US-ALEXION PHARMACEUTICALS INC.-A201811615

PATIENT
  Age: 23 Year
  Sex: Female
  Weight: 58.3 kg

DRUGS (1)
  1. STRENSIQ [Suspect]
     Active Substance: ASFOTASE ALFA
     Indication: HYPOPHOSPHATASIA
     Dosage: 58 MG, SIX TIMES/WEEK
     Route: 058

REACTIONS (5)
  - Injection site discolouration [Recovered/Resolved]
  - Injection site pain [Recovered/Resolved]
  - Product administration error [Recovered/Resolved]
  - Injection site erythema [Recovered/Resolved]
  - Injection site swelling [Recovered/Resolved]

NARRATIVE: CASE EVENT DATE: 20180831
